FAERS Safety Report 17756991 (Version 1)
Quarter: 2020Q2

REPORT INFORMATION
  Report Type: Spontaneous
  Country: US (occurrence: US)
  Receive Date: 20200507
  Receipt Date: 20200507
  Transmission Date: 20200714
  Serious: Yes (Life-Threatening, Disabling)
  Sender: FDA-Public Use
  Company Number: None

PATIENT
  Age: 65 Year
  Sex: Female
  Weight: 74.25 kg

DRUGS (11)
  1. HYDROCHLOROTHIAZIDE\TRIAMTERINE [Concomitant]
  2. WARFARIN [Concomitant]
     Active Substance: WARFARIN
  3. CHEWABLE VITAMIN C [Concomitant]
  4. LANSPRAZOLE [Concomitant]
  5. COLCHICINE. [Concomitant]
     Active Substance: COLCHICINE
  6. MAGNESUM OXIDE [Concomitant]
  7. FABB [Concomitant]
  8. TORSEMIDE. [Concomitant]
     Active Substance: TORSEMIDE
  9. VITAMIN D3  1000 UNITS [Concomitant]
  10. ALLOPURINOL 300 MG TABLETS [Suspect]
     Active Substance: ALLOPURINOL
     Indication: BLOOD URIC ACID INCREASED
     Dosage: ?          QUANTITY:1 TABLET(S);?
     Route: 048
     Dates: start: 20200502, end: 20200507
  11. ACETAMINOPHEN. [Concomitant]
     Active Substance: ACETAMINOPHEN

REACTIONS (9)
  - Wheezing [None]
  - Tachycardia [None]
  - Back pain [None]
  - Rash [None]
  - Headache [None]
  - Dizziness [None]
  - Pruritus [None]
  - Hypertension [None]
  - Reaction to excipient [None]

NARRATIVE: CASE EVENT DATE: 20200507
